FAERS Safety Report 10005304 (Version 1)
Quarter: 2014Q1

REPORT INFORMATION
  Report Type: Spontaneous
  Country: US (occurrence: US)
  Receive Date: 20140312
  Receipt Date: 20140312
  Transmission Date: 20141002
  Serious: Yes (Other)
  Sender: FDA-Public Use
  Company Number: US-B.I. PHARMACEUTICALS,INC./RIDGEFIELD-2014-BI-10461BP

PATIENT
  Sex: Female

DRUGS (10)
  1. SPIRIVA [Suspect]
     Indication: CHRONIC OBSTRUCTIVE PULMONARY DISEASE
     Dosage: 18 MCG
     Route: 055
     Dates: start: 2004
  2. LUMIGAN [Concomitant]
  3. TACROLIMUS [Concomitant]
     Route: 048
  4. PREDINISONE [Concomitant]
     Route: 048
  5. BACTRIM [Concomitant]
     Route: 048
  6. NYSTATIN [Concomitant]
     Route: 048
  7. ZOLOFT [Concomitant]
     Indication: DEPRESSION
     Route: 048
  8. MULTIVITAMIN [Concomitant]
     Route: 048
  9. VITAMIN D [Concomitant]
     Route: 048
  10. ADVAIR [Concomitant]
     Route: 055

REACTIONS (3)
  - Blindness [Not Recovered/Not Resolved]
  - Glaucoma [Not Recovered/Not Resolved]
  - Cataract [Recovered/Resolved]
